FAERS Safety Report 10377387 (Version 1)
Quarter: 2014Q3

REPORT INFORMATION
  Report Type: Spontaneous
  Country: GB (occurrence: GB)
  Receive Date: 20140812
  Receipt Date: 20140812
  Transmission Date: 20150326
  Serious: Yes (Life-Threatening, Disabling, Other)
  Sender: FDA-Public Use
  Company Number: PHHY2014GB094345

PATIENT
  Age: 38 Year
  Sex: Female
  Weight: 60 kg

DRUGS (3)
  1. FLUOXETINE [Concomitant]
     Active Substance: FLUOXETINE\FLUOXETINE HYDROCHLORIDE
     Indication: DEPRESSED MOOD
     Dosage: 20 MG
     Route: 048
  2. TIBOLONE [Suspect]
     Active Substance: TIBOLONE
     Dosage: INDICATION: INDUCE MENOPAUSE
     Dates: start: 20140620
  3. OLANZAPINE. [Suspect]
     Active Substance: OLANZAPINE
     Dosage: 5 MG-STARTED APPROXIMATELY THREE WEEKS PRIOR TO REACTION
     Route: 048

REACTIONS (1)
  - Acute hepatic failure [Not Recovered/Not Resolved]
